FAERS Safety Report 21661148 (Version 1)
Quarter: 2022Q4

REPORT INFORMATION
  Report Type: Spontaneous
  Country: GB (occurrence: GB)
  Receive Date: 20221130
  Receipt Date: 20221130
  Transmission Date: 20230112
  Serious: Yes (Other)
  Sender: FDA-Public Use
  Company Number: GB-TEVA-2022-GB-2830772

PATIENT
  Age: 22 Year
  Sex: Male

DRUGS (5)
  1. OCTREOTIDE [Suspect]
     Active Substance: OCTREOTIDE
     Indication: Noonan syndrome
     Route: 065
  2. BUMETANIDE [Suspect]
     Active Substance: BUMETANIDE
     Indication: Noonan syndrome
     Dosage: HIGH-DOSE
     Route: 048
  3. SPIRONOLACTONE [Suspect]
     Active Substance: SPIRONOLACTONE
     Indication: Noonan syndrome
     Dosage: HIGH-DOSE
     Route: 065
  4. TRAMETINIB [Suspect]
     Active Substance: TRAMETINIB
     Indication: Noonan syndrome
     Route: 048
  5. TRAMETINIB [Suspect]
     Active Substance: TRAMETINIB
     Indication: Noonan syndrome
     Dosage: THEREAFTER
     Route: 048

REACTIONS (8)
  - Treatment failure [Unknown]
  - Nausea [Unknown]
  - Gastritis [Unknown]
  - Constipation [Unknown]
  - Eczema [Unknown]
  - Off label use [Unknown]
  - Iron deficiency anaemia [Unknown]
  - Drug ineffective [Unknown]
